FAERS Safety Report 9997866 (Version 1)
Quarter: 2014Q1

REPORT INFORMATION
  Report Type: Spontaneous
  Country: US (occurrence: None)
  Receive Date: 20140224
  Receipt Date: 20140224
  Transmission Date: 20141002
  Serious: Yes (Hospitalization)
  Sender: FDA-Public Use
  Company Number: 2013110090

PATIENT
  Age: 22 Year
  Sex: Male

DRUGS (2)
  1. MESALAMINE [Suspect]
     Indication: COLITIS ULCERATIVE
     Dosage: 4800 MG (1600 MG, 3 IN 1 D) THERAPY DATES - STOPPED
  2. MESALAMINE [Suspect]
     Dosage: 4800 MG (1600 MG, 3 IN 1 D) THERAPY DATES - STOPPED

REACTIONS (1)
  - Pericarditis [None]
